FAERS Safety Report 14324883 (Version 1)
Quarter: 2017Q4

REPORT INFORMATION
  Report Type: Spontaneous
  Country: US (occurrence: US)
  Receive Date: 20171226
  Receipt Date: 20171226
  Transmission Date: 20180321
  Serious: Yes (Other)
  Sender: FDA-Public Use
  Company Number: US-TEVA-2017-US-836598

PATIENT
  Sex: Male
  Weight: 57 kg

DRUGS (1)
  1. FINASTERIDE. [Suspect]
     Active Substance: FINASTERIDE
     Indication: BENIGN PROSTATIC HYPERPLASIA
     Dates: end: 20171213

REACTIONS (8)
  - Night sweats [Unknown]
  - Oxygen saturation decreased [Unknown]
  - Abnormal dreams [Unknown]
  - Urticaria [Unknown]
  - Chest pain [Unknown]
  - Heart rate increased [Unknown]
  - Panic attack [Unknown]
  - Pollakiuria [Unknown]

NARRATIVE: CASE EVENT DATE: 2016
